FAERS Safety Report 12683797 (Version 2)
Quarter: 2016Q3

REPORT INFORMATION
  Report Type: Spontaneous
  Country: CA (occurrence: CA)
  Receive Date: 20160825
  Receipt Date: 20160926
  Transmission Date: 20161109
  Serious: Yes (Other)
  Sender: FDA-Public Use
  Company Number: CA-OTSUKA-2016_020200

PATIENT
  Age: 37 Year
  Sex: Male

DRUGS (1)
  1. JINARC [Suspect]
     Active Substance: TOLVAPTAN
     Indication: CONGENITAL CYSTIC KIDNEY DISEASE
     Dosage: 45/15, UNK
     Route: 065

REACTIONS (2)
  - Gout [Unknown]
  - Renal cyst ruptured [Unknown]

NARRATIVE: CASE EVENT DATE: 20160814
